FAERS Safety Report 9335795 (Version 2)
Quarter: 2013Q3

REPORT INFORMATION
  Report Type: Report from Study
  Country: US (occurrence: US)
  Receive Date: 20130607
  Receipt Date: 20130704
  Transmission Date: 20140515
  Serious: Yes (Other)
  Sender: FDA-Public Use
  Company Number: US-ROCHE-1233138

PATIENT
  Age: 72 Year
  Sex: Female
  Weight: 69.46 kg

DRUGS (9)
  1. LUCENTIS [Suspect]
     Indication: AGE-RELATED MACULAR DEGENERATION
     Route: 065
     Dates: start: 20090811
  2. LUCENTIS [Suspect]
     Route: 065
     Dates: start: 20130526
  3. SIMVASTATIN [Concomitant]
     Route: 048
     Dates: start: 2000
  4. SINGULAIR [Concomitant]
     Indication: ASTHMA
     Route: 048
     Dates: start: 1995
  5. SINGULAIR [Concomitant]
     Indication: HYPERSENSITIVITY
  6. SPIRIVA [Concomitant]
     Indication: ASTHMA
     Route: 065
     Dates: start: 1995
  7. SPIRIVA [Concomitant]
     Indication: HYPERSENSITIVITY
  8. SYMBICORT [Concomitant]
     Indication: ASTHMA
     Route: 065
     Dates: start: 1995
  9. SYMBICORT [Concomitant]
     Indication: HYPERSENSITIVITY

REACTIONS (2)
  - Pulmonary mass [Recovered/Resolved]
  - Eye swelling [Unknown]
